FAERS Safety Report 7736344-5 (Version None)
Quarter: 2011Q3

REPORT INFORMATION
  Report Type: 
  Country: None (occurrence: None)
  Receive Date: 20110908
  Receipt Date: 20110829
  Transmission Date: 20111222
  Serious: Yes (Hospitalization)
  Sender: FDA-Public Use
  Company Number: DE-UCBSA-039675

PATIENT
  Sex: Male
  Weight: 20 kg

DRUGS (1)
  1. KEPPRA [Suspect]
     Route: 048
     Dates: start: 20110815, end: 20110815

REACTIONS (1)
  - ACCIDENTAL DRUG INTAKE BY CHILD [None]
